FAERS Safety Report 4414959-X (Version None)
Quarter: 2004Q3

REPORT INFORMATION
  Report Type: 
  Country: None (occurrence: None)
  Receive Date: 20040804
  Receipt Date: 20040726
  Transmission Date: 20050211
  Serious: Yes (Hospitalization)
  Sender: FDA-Public Use
  Company Number: 200417569GDDC

PATIENT
  Age: 47 Year
  Sex: Male
  Weight: 60 kg

DRUGS (5)
  1. TAXOTERE [Suspect]
     Indication: NASOPHARYNGEAL CANCER
     Route: 042
     Dates: start: 20040608, end: 20040608
  2. CISPLATIN [Suspect]
     Indication: NASOPHARYNGEAL CANCER
     Route: 042
     Dates: start: 20040720, end: 20040720
  3. THYMOL [Concomitant]
     Dates: start: 20040720
  4. NYSTATIN [Concomitant]
     Dates: start: 20040720
  5. ACETAMINOPHEN [Concomitant]
     Route: 048
     Dates: start: 20040720

REACTIONS (1)
  - BLOOD CREATININE INCREASED [None]
